FAERS Safety Report 14920621 (Version 2)
Quarter: 2018Q3

REPORT INFORMATION
  Report Type: Spontaneous
  Country: US (occurrence: US)
  Receive Date: 20180521
  Receipt Date: 20180829
  Transmission Date: 20181010
  Serious: Yes (Death)
  Sender: FDA-Public Use
  Company Number: CA-NAPPMUNDI-USA-2018-0143657

PATIENT
  Age: 41 Year
  Sex: Female

DRUGS (3)
  1. CHLORAL HYDRATE [Suspect]
     Active Substance: CHLORAL HYDRATE
     Indication: ASSISTED SUICIDE
     Dosage: UNK
     Route: 065
     Dates: start: 2016, end: 2016
  2. MORPHINE SULFATE (SIMILAR TO NDA 19?516) [Suspect]
     Active Substance: MORPHINE SULFATE
     Indication: ASSISTED SUICIDE
     Dosage: UNK
     Route: 048
     Dates: start: 2016, end: 2016
  3. PENTOBARBITAL. [Suspect]
     Active Substance: PENTOBARBITAL
     Indication: ASSISTED SUICIDE
     Dosage: UNK
     Route: 065
     Dates: start: 2016, end: 2016

REACTIONS (1)
  - Assisted suicide [Fatal]

NARRATIVE: CASE EVENT DATE: 20160615
